FAERS Safety Report 9896194 (Version 2)
Quarter: 2014Q1

REPORT INFORMATION
  Report Type: Spontaneous
  Country: US (occurrence: US)
  Receive Date: 20140213
  Receipt Date: 20140213
  Transmission Date: 20141002
  Serious: No
  Sender: FDA-Public Use
  Company Number: US-BRISTOL-MYERS SQUIBB COMPANY-17324344

PATIENT
  Age: 56 Year
  Sex: Female
  Weight: 63.94 kg

DRUGS (6)
  1. ABATACEPT SUBQ INJECTION 125MG/ML [Suspect]
     Indication: RHEUMATOID ARTHRITIS
     Dates: end: 2012
  2. HUMIRA [Suspect]
     Indication: RHEUMATOID ARTHRITIS
     Dosage: 1.HUMIRA (40 MG, SOL FOR INJ IN PRE-FILLED)2004-2010;?2.HUMIRA (40 MG, INJECTION)2012-ONG
     Route: 058
     Dates: start: 2004
  3. TRAMADOL HCL [Concomitant]
     Indication: RHEUMATOID ARTHRITIS
     Dosage: TABS
  4. IBUPROFEN [Concomitant]
     Indication: RHEUMATOID ARTHRITIS
     Dosage: TABS
  5. MULTIVITAMIN [Concomitant]
     Dosage: CAP
  6. FLONASE [Concomitant]

REACTIONS (2)
  - Psoriasis [Unknown]
  - Drug ineffective [Unknown]
